FAERS Safety Report 7968022-1 (Version None)
Quarter: 2011Q4

REPORT INFORMATION
  Report Type: 
  Country: None (occurrence: None)
  Receive Date: 20111121
  Receipt Date: 20110818
  Transmission Date: 20120403
  Serious: No
  Sender: FDA-Public Use
  Company Number: 1000022995

PATIENT
  Sex: Female

DRUGS (7)
  1. IMITREX (SUMATRIPTAN) (SUMATRIPTAN) [Concomitant]
  2. CRESTOR (ROSUVASTAIN CALCIUM) (ROSUVASTATIN CALCIUM) [Concomitant]
  3. KLONOPIN (CLONAZEPAM) (TABLETS) (CLONAZEPAM) [Concomitant]
  4. HYDROCHLOROTHIAZIDE [Concomitant]
  5. PREVACID (LANSOPRAZOLE) (LANSOPRAZOLE) [Concomitant]
  6. VIIBRYD [Suspect]
     Indication: ANXIETY
     Dosage: 10 MG (10 MG, 1 IN 1 D), ORAL
     Route: 048
     Dates: start: 20110816
  7. VIIBRYD [Suspect]
     Indication: DEPRESSION
     Dosage: 10 MG (10 MG, 1 IN 1 D), ORAL
     Route: 048
     Dates: start: 20110816

REACTIONS (1)
  - VISION BLURRED [None]
